FAERS Safety Report 4572981-7 (Version None)
Quarter: 2005Q1

REPORT INFORMATION
  Report Type: 
  Country: None (occurrence: None)
  Receive Date: 20050203
  Receipt Date: 20050118
  Transmission Date: 20050727
  Serious: Yes (Hospitalization)
  Sender: FDA-Public Use
  Company Number: DSA_25697_2005

PATIENT
  Age: 70 Year
  Sex: Female

DRUGS (7)
  1. ENALAPRIL MALEATE [Suspect]
     Indication: ESSENTIAL HYPERTENSION
     Dosage: 10 MG QD PO
     Route: 048
  2. TAUREDON [Suspect]
     Indication: RHEUMATOID ARTHRITIS
     Dosage: 0.5 ML Q2WK UNK
     Route: 065
     Dates: start: 20040902
  3. ACETAMINOPHEN [Concomitant]
  4. CALCICHEW [Concomitant]
  5. GLIBENCLAMID ^COPHAR^ [Concomitant]
  6. METFORMIN HCL [Concomitant]
  7. PREDNISOLONE [Concomitant]

REACTIONS (6)
  - ASTHENIA [None]
  - DRUG INTERACTION [None]
  - ERYTHEMA [None]
  - MALAISE [None]
  - NITRITOID CRISIS [None]
  - SYNCOPE [None]
